FAERS Safety Report 18588666 (Version 1)
Quarter: 2020Q4

REPORT INFORMATION
  Report Type: Spontaneous
  Country: CN (occurrence: CN)
  Receive Date: 20201207
  Receipt Date: 20201207
  Transmission Date: 20210114
  Serious: Yes (Other)
  Sender: FDA-Public Use
  Company Number: CN-PFIZER INC-2020480942

PATIENT
  Age: 62 Year
  Sex: Female
  Weight: 58 kg

DRUGS (4)
  1. FURAZOLIDONE [Suspect]
     Active Substance: FURAZOLIDONE
     Indication: HELICOBACTER INFECTION
     Dosage: 100 MILLIGRAM, BID
     Route: 048
     Dates: start: 20201114, end: 20201121
  2. AMOXICILLIN [AMOXICILLIN TRIHYDRATE] [Suspect]
     Active Substance: AMOXICILLIN
     Indication: HELICOBACTER INFECTION
     Dosage: 1 GRAM, BID
     Route: 048
     Dates: start: 20201114, end: 20201121
  3. PANTOLOC [Suspect]
     Active Substance: PANTOPRAZOLE SODIUM
     Indication: HELICOBACTER INFECTION
     Dosage: 40 MILLIGRAM, BID
     Route: 048
     Dates: start: 20201114, end: 20201121
  4. COLLOIDAL BISMUTH PECTIN [Suspect]
     Active Substance: BISMUTH
     Indication: HELICOBACTER INFECTION
     Dosage: 200 MILLIGRAM, BID
     Route: 048
     Dates: start: 20201114, end: 20201121

REACTIONS (4)
  - Joint swelling [Recovering/Resolving]
  - Pruritus [Recovering/Resolving]
  - Arthralgia [Recovering/Resolving]
  - Poikiloderma [Recovering/Resolving]

NARRATIVE: CASE EVENT DATE: 20201121
